FAERS Safety Report 7585731-7 (Version None)
Quarter: 2011Q3

REPORT INFORMATION
  Report Type: 
  Country: None (occurrence: None)
  Receive Date: 20110701
  Receipt Date: 20110623
  Transmission Date: 20111222
  Serious: Yes (Hospitalization)
  Sender: FDA-Public Use
  Company Number: US-AMGEN-USACT2011032039

PATIENT
  Age: 61 Year

DRUGS (6)
  1. PEGFILGRASTIM [Suspect]
     Indication: BREAST CANCER
     Dosage: 6 MG, Q2WK
     Route: 058
     Dates: start: 20100909
  2. FILGRASTIM [Suspect]
     Indication: BREAST CANCER
     Dosage: UNK
     Route: 058
     Dates: start: 20100909
  3. BEVACIZUMAB [Concomitant]
     Indication: BREAST CANCER
     Dosage: UNK UNK, BLINDED
     Route: 042
     Dates: start: 20100908
  4. CYCLOPHOSPHAMIDE [Concomitant]
     Indication: BREAST CANCER
     Dosage: 600 MG/M2, Q2WK
     Route: 042
     Dates: start: 20100908
  5. DOXORUBICIN HCL [Concomitant]
     Indication: BREAST CANCER
     Dosage: 60 MG/M2, Q2WK
     Route: 042
     Dates: start: 20100908
  6. TAXOL [Concomitant]
     Indication: BREAST CANCER
     Dosage: 80 MG/M2, Q3WK
     Route: 042

REACTIONS (1)
  - DEVICE RELATED INFECTION [None]
